FAERS Safety Report 5053202-8 (Version None)
Quarter: 2006Q3

REPORT INFORMATION
  Report Type: 
  Country: None (occurrence: None)
  Receive Date: 20060717
  Receipt Date: 20060522
  Transmission Date: 20061208
  Serious: Yes (Death, Congenital Anomaly, Other)
  Sender: FDA-Public Use
  Company Number: US-ABBOTT-06P-163-0333996-00

PATIENT
  Sex: Female

DRUGS (4)
  1. KALETRA [Suspect]
     Indication: DRUG EXPOSURE DURING PREGNANCY
  2. TRIZIVIR [Suspect]
     Indication: DRUG EXPOSURE DURING PREGNANCY
  3. BARACLUDE [Suspect]
     Indication: DRUG EXPOSURE DURING PREGNANCY
  4. ZIDOVUDINE [Suspect]
     Indication: DRUG EXPOSURE DURING PREGNANCY

REACTIONS (3)
  - FOETAL HEART RATE ABNORMAL [None]
  - PREMATURE BABY [None]
  - TRISOMY 18 [None]
